FAERS Safety Report 6457588-9 (Version None)
Quarter: 2009Q4

REPORT INFORMATION
  Report Type: 
  Country: None (occurrence: None)
  Receive Date: 20091125
  Receipt Date: 20091120
  Transmission Date: 20100525
  Serious: Yes (Death, Other)
  Sender: FDA-Public Use
  Company Number: PHEH2009US16412

PATIENT
  Sex: Male

DRUGS (2)
  1. RITALIN [Suspect]
  2. CONCERTA [Suspect]

REACTIONS (4)
  - ANXIETY [None]
  - DRUG TOXICITY [None]
  - INJURY [None]
  - PAIN [None]
